FAERS Safety Report 25795163 (Version 1)
Quarter: 2025Q3

REPORT INFORMATION
  Report Type: Spontaneous
  Country: US (occurrence: US)
  Receive Date: 20250912
  Receipt Date: 20250912
  Transmission Date: 20251020
  Serious: No
  Sender: Apozeal Pharmaceuticals
  Company Number: US-Apozeal Pharmaceuticals-2184390

PATIENT
  Sex: Male

DRUGS (2)
  1. RISPERIDONE [Suspect]
     Active Substance: RISPERIDONE
     Indication: Aggression
  2. RISPERIDONE [Suspect]
     Active Substance: RISPERIDONE
     Indication: Mood swings

REACTIONS (2)
  - Weight increased [Unknown]
  - Product use in unapproved indication [Unknown]
